FAERS Safety Report 7837526-4 (Version None)
Quarter: 2011Q4

REPORT INFORMATION
  Report Type: 
  Country: None (occurrence: None)
  Receive Date: 20111024
  Receipt Date: 20110201
  Transmission Date: 20120403
  Serious: No
  Sender: FDA-Public Use
  Company Number: US-ABBOTT-11P-163-0701743-00

PATIENT
  Sex: Female

DRUGS (2)
  1. BCP [Suspect]
     Indication: PRODUCT USED FOR UNKNOWN INDICATION
  2. LUPRON DEPOT [Suspect]
     Indication: PRODUCT USED FOR UNKNOWN INDICATION

REACTIONS (4)
  - NAUSEA [None]
  - HOT FLUSH [None]
  - PELVIC PAIN [None]
  - WEIGHT LOSS POOR [None]
